FAERS Safety Report 4728208-6 (Version None)
Quarter: 2005Q3

REPORT INFORMATION
  Report Type: 
  Country: None (occurrence: None)
  Receive Date: 20050727
  Receipt Date: 20050715
  Transmission Date: 20060218
  Serious: No
  Sender: FDA-Public Use
  Company Number: 11815

PATIENT
  Age: 53 Year
  Sex: Male

DRUGS (2)
  1. AMIODARONE [Suspect]
     Indication: VENTRICULAR FIBRILLATION
     Dosage: 200 MG TID/200MG
  2. AMIODARONE [Suspect]
     Indication: VENTRICULAR TACHYCARDIA
     Dosage: 200 MG TID/200MG

REACTIONS (4)
  - COUGH [None]
  - DYSPNOEA [None]
  - LUNG INFILTRATION [None]
  - PLEURAL EFFUSION [None]
